FAERS Safety Report 19943005 (Version 1)
Quarter: 2021Q4

REPORT INFORMATION
  Report Type: Spontaneous
  Country: US (occurrence: US)
  Receive Date: 20211011
  Receipt Date: 20211011
  Transmission Date: 20220303
  Serious: Yes (unspecified)
  Sender: FDA-Public Use
  Company Number: None

PATIENT
  Age: 31 Year
  Sex: Male
  Weight: 108.7 kg

DRUGS (1)
  1. REMICADE [Suspect]
     Active Substance: INFLIXIMAB
     Indication: Crohn^s disease
     Dosage: ?          OTHER FREQUENCY:EVERY 7 WEEKS;
     Route: 041
     Dates: start: 20201203

REACTIONS (7)
  - Infusion related reaction [None]
  - Malaise [None]
  - Erythema [None]
  - Throat irritation [None]
  - Dyspnoea [None]
  - Paraesthesia [None]
  - Heart rate increased [None]

NARRATIVE: CASE EVENT DATE: 20211011
